FAERS Safety Report 17213103 (Version 1)
Quarter: 2019Q4

REPORT INFORMATION
  Report Type: Spontaneous
  Country: US (occurrence: US)
  Receive Date: 20191230
  Receipt Date: 20191230
  Transmission Date: 20200122
  Serious: Yes (Other)
  Sender: FDA-Public Use
  Company Number: US-INFO-000895

PATIENT
  Sex: Female
  Weight: 81.65 kg

DRUGS (9)
  1. OMEPRAZOLE. [Concomitant]
     Active Substance: OMEPRAZOLE
     Route: 048
     Dates: start: 2017
  2. ESTRACE [Concomitant]
     Active Substance: ESTRADIOL
     Route: 067
     Dates: start: 2016
  3. KEFLEX [Concomitant]
     Active Substance: CEPHALEXIN
     Route: 048
     Dates: start: 20191115
  4. HYDROCHLOROTHIAZIDE. [Concomitant]
     Active Substance: HYDROCHLOROTHIAZIDE
     Route: 048
  5. CLARITIN [Concomitant]
     Active Substance: LORATADINE
     Route: 048
     Dates: start: 2013
  6. ZOLEDRONIC ACID 5MG/100ML [Suspect]
     Active Substance: ZOLEDRONIC ACID
     Indication: OSTEOPOROSIS
     Route: 042
     Dates: start: 2016, end: 20190925
  7. SIMVASTATIN. [Concomitant]
     Active Substance: SIMVASTATIN
     Route: 048
     Dates: start: 2014
  8. MONTELUKAST SODIUM. [Concomitant]
     Active Substance: MONTELUKAST SODIUM
     Route: 048
     Dates: start: 201903
  9. AUGMENTIN [Concomitant]
     Active Substance: AMOXICILLIN\CLAVULANATE POTASSIUM
     Dosage: AS DIRECTED
     Route: 048
     Dates: start: 20191112, end: 20191115

REACTIONS (2)
  - Off label use [Unknown]
  - Acetabulum fracture [Unknown]
